FAERS Safety Report 25289203 (Version 1)
Quarter: 2025Q2

REPORT INFORMATION
  Report Type: Report from Study
  Country: DE (occurrence: DE)
  Receive Date: 20250509
  Receipt Date: 20250509
  Transmission Date: 20250716
  Serious: Yes (Hospitalization)
  Sender: ALNYLAM PHARMACEUTICALS
  Company Number: DE-ALNYLAM PHARMACEUTICALS, INC.-ALN-2025-003074

PATIENT

DRUGS (1)
  1. AMVUTTRA [Suspect]
     Active Substance: VUTRISIRAN
     Indication: Familial amyloidosis
     Dosage: 25 MILLIGRAM, Q3M
     Route: 058
     Dates: start: 20250210, end: 20250210

REACTIONS (1)
  - Medical device implantation [Unknown]

NARRATIVE: CASE EVENT DATE: 20250301
